FAERS Safety Report 22234395 (Version 1)
Quarter: 2023Q2

REPORT INFORMATION
  Report Type: Spontaneous
  Country: US (occurrence: None)
  Receive Date: 20230420
  Receipt Date: 20230420
  Transmission Date: 20230722
  Serious: No
  Sender: FDA-Public Use
  Company Number: US-ROCHE-3178896

PATIENT
  Sex: Male

DRUGS (3)
  1. ESBRIET [Suspect]
     Active Substance: PIRFENIDONE
     Indication: Insomnia
     Route: 048
     Dates: start: 20190219
  2. TIKOSYN [Suspect]
     Active Substance: DOFETILIDE
     Indication: Product used for unknown indication
     Dosage: 250 MCG
     Route: 048
     Dates: start: 20210106
  3. OFEV [Concomitant]
     Active Substance: NINTEDANIB
     Indication: Thrombocytopenia
     Route: 065
     Dates: start: 20200303

REACTIONS (1)
  - Hypersensitivity [Unknown]
